FAERS Safety Report 5805419-X (Version None)
Quarter: 2008Q3

REPORT INFORMATION
  Report Type: 
  Country: None (occurrence: None)
  Receive Date: 20080708
  Receipt Date: 20080629
  Transmission Date: 20090109
  Serious: Yes (Other)
  Sender: FDA-Public Use
  Company Number: CHPA2008US10892

PATIENT
  Age: 40 Year
  Sex: Female

DRUGS (1)
  1. MAALOX MS TOTAL STOMACH RELIEF (NCH)(BISMUTH [Suspect]
     Indication: DYSPEPSIA

REACTIONS (2)
  - FAECES DISCOLOURED [None]
  - HAEMATOCHEZIA [None]
